FAERS Safety Report 15731005 (Version 1)
Quarter: 2018Q4

REPORT INFORMATION
  Report Type: Spontaneous
  Country: US (occurrence: US)
  Receive Date: 20181217
  Receipt Date: 20181217
  Transmission Date: 20190205
  Serious: Yes (Life-Threatening)
  Sender: FDA-Public Use
  Company Number: None

PATIENT
  Age: 49 Year
  Sex: Female
  Weight: 103.5 kg

DRUGS (1)
  1. MULTIHANCE [Suspect]
     Active Substance: GADOBENATE DIMEGLUMINE
     Indication: HEPATIC LESION
     Dosage: ?          OTHER FREQUENCY:WITH CONTRASTED MR;?
     Route: 042

REACTIONS (6)
  - Hypoaesthesia oral [None]
  - Anaphylactic reaction [None]
  - Nausea [None]
  - Back pain [None]
  - Chest pain [None]
  - Paraesthesia [None]

NARRATIVE: CASE EVENT DATE: 20181024
